FAERS Safety Report 25861008 (Version 1)
Quarter: 2025Q3

REPORT INFORMATION
  Report Type: Spontaneous
  Country: US (occurrence: US)
  Receive Date: 20250929
  Receipt Date: 20250929
  Transmission Date: 20251021
  Serious: No
  Sender: SANOFI AVENTIS
  Company Number: US-SA-2025SA286654

PATIENT
  Sex: Female

DRUGS (2)
  1. WAYRILZ [Suspect]
     Active Substance: RILZABRUTINIB
     Indication: Immune thrombocytopenia
  2. DEXAMETHASONE [Suspect]
     Active Substance: DEXAMETHASONE
     Route: 040

REACTIONS (1)
  - Myalgia [Unknown]
